FAERS Safety Report 4388674-5 (Version None)
Quarter: 2004Q2

REPORT INFORMATION
  Report Type: 
  Country: None (occurrence: None)
  Receive Date: 20040624
  Receipt Date: 20040611
  Transmission Date: 20050107
  Serious: Yes (Other)
  Sender: FDA-Public Use
  Company Number: US-JNJFOC-20040603003

PATIENT
  Sex: 0

DRUGS (2)
  1. CONCERTA [Suspect]
     Indication: DRUG USE FOR UNKNOWN INDICATION
     Dosage: ORAL
     Route: 048
  2. PHENYLEPHRINE HYDROCHLORIDE NASAL SPRAY (PHENYLEPHRINE HYDROCHLORIDE) [Suspect]
     Indication: NASAL CONGESTION
     Dosage: NASAL
     Route: 045

REACTIONS (3)
  - BLOOD PRESSURE INCREASED [None]
  - HEART RATE INCREASED [None]
  - NASAL CONGESTION [None]
